FAERS Safety Report 4890121-1 (Version None)
Quarter: 2006Q1

REPORT INFORMATION
  Report Type: 
  Country: None (occurrence: None)
  Receive Date: 20060124
  Receipt Date: 20060115
  Transmission Date: 20060701
  Serious: Yes (Other)
  Sender: FDA-Public Use
  Company Number: DE-ABBOTT-06P-062-0322513-00

PATIENT
  Age: 14 Year
  Sex: Female

DRUGS (2)
  1. KLACID FORTE TABLETS [Suspect]
     Indication: SUICIDE ATTEMPT
     Route: 048
     Dates: start: 20060115, end: 20060115
  2. CLOBAZAM [Suspect]
     Indication: SUICIDE ATTEMPT
     Route: 048
     Dates: start: 20060115, end: 20060115

REACTIONS (2)
  - OVERDOSE [None]
  - SUICIDE ATTEMPT [None]
